FAERS Safety Report 4811441-2 (Version None)
Quarter: 2005Q4

REPORT INFORMATION
  Report Type: 
  Country: None (occurrence: None)
  Receive Date: 20051027
  Receipt Date: 20050912
  Transmission Date: 20060501
  Serious: Yes (Disabling, Other)
  Sender: FDA-Public Use
  Company Number: CH-BRISTOL-MYERS SQUIBB COMPANY-13110432

PATIENT
  Age: 38 Year
  Sex: Female

DRUGS (4)
  1. TAXOL [Suspect]
     Indication: BREAST CANCER
     Route: 042
     Dates: start: 20050822, end: 20050822
  2. ZANTAC [Concomitant]
  3. TAVEGYL [Concomitant]
  4. NAVOBAN [Concomitant]

REACTIONS (2)
  - PARAESTHESIA [None]
  - TRIGEMINAL NEURALGIA [None]
